FAERS Safety Report 7264000-9 (Version None)
Quarter: 2011Q1

REPORT INFORMATION
  Report Type: 
  Country: None (occurrence: None)
  Receive Date: 20110130
  Receipt Date: 20101101
  Transmission Date: 20110831
  Serious: No
  Sender: FDA-Public Use
  Company Number: US-ABBOTT-10P-163-0682741-00

PATIENT
  Age: 25 Year
  Sex: Female

DRUGS (5)
  1. FOLIC ACID [Concomitant]
     Indication: VITAMIN SUPPLEMENTATION
  2. CALCIUM [Concomitant]
     Indication: MINERAL SUPPLEMENTATION
  3. HUMIRA [Suspect]
     Indication: CROHN'S DISEASE
     Dates: start: 20100601, end: 20101025
  4. SEASONALE [Concomitant]
     Indication: CONTRACEPTION
  5. IMURAN [Concomitant]
     Indication: CROHN'S DISEASE
     Dosage: 3 TABLETS DAILY

REACTIONS (3)
  - SKIN INDURATION [None]
  - URTICARIA [None]
  - PAIN [None]
